FAERS Safety Report 15955939 (Version 2)
Quarter: 2019Q2

REPORT INFORMATION
  Report Type: Spontaneous
  Country: US (occurrence: US)
  Receive Date: 20190213
  Receipt Date: 20190428
  Transmission Date: 20190711
  Serious: No
  Sender: FDA-Public Use
  Company Number: US-BIOGEN-2019BI00694880

PATIENT
  Age: 29 Year
  Sex: Male

DRUGS (4)
  1. TECFIDERA [Suspect]
     Active Substance: DIMETHYL FUMARATE
     Indication: MULTIPLE SCLEROSIS
     Dosage: STARTING DOSE 120MG TWICE DAILY
     Route: 050
  2. AMPYRA [Suspect]
     Active Substance: DALFAMPRIDINE
     Indication: PRODUCT USED FOR UNKNOWN INDICATION
     Route: 050
  3. TYSABRI [Suspect]
     Active Substance: NATALIZUMAB
     Indication: MULTIPLE SCLEROSIS
     Dosage: INFUSED OVER 1 HR
     Route: 050
     Dates: start: 20180730, end: 20190201
  4. TECFIDERA [Suspect]
     Active Substance: DIMETHYL FUMARATE
     Dosage: MAINTENANCE DOSE
     Route: 050
     Dates: start: 20190220

REACTIONS (12)
  - Visual impairment [Unknown]
  - Gait disturbance [Unknown]
  - Depressed mood [Recovered/Resolved]
  - Balance disorder [Unknown]
  - Slow speech [Unknown]
  - Hyperreflexia [Unknown]
  - Muscular weakness [Unknown]
  - Paraesthesia [Unknown]
  - Aphasia [Unknown]
  - Fatigue [Unknown]
  - Dysgraphia [Unknown]
  - Hypoaesthesia [Unknown]

NARRATIVE: CASE EVENT DATE: 201901
